FAERS Safety Report 9669756 (Version 1)
Quarter: 2013Q4

REPORT INFORMATION
  Report Type: Spontaneous
  Country: US (occurrence: US)
  Receive Date: 20131105
  Receipt Date: 20131105
  Transmission Date: 20140711
  Serious: Yes (Other)
  Sender: FDA-Public Use
  Company Number: US-PFIZER INC-2013313824

PATIENT
  Sex: Female

DRUGS (2)
  1. TRIAZOLAM [Suspect]
     Indication: INSOMNIA
     Dosage: 0.25 MG, UNK
  2. OXYGEN [Suspect]
     Indication: DYSPNOEA
     Dosage: UNK

REACTIONS (4)
  - Cataract [Unknown]
  - Cardiac disorder [Unknown]
  - Terminal insomnia [Unknown]
  - Visual impairment [Unknown]
